FAERS Safety Report 18554414 (Version 2)
Quarter: 2021Q2

REPORT INFORMATION
  Report Type: Spontaneous
  Country: US (occurrence: US)
  Receive Date: 20201127
  Receipt Date: 20210623
  Transmission Date: 20210717
  Serious: No
  Sender: FDA-Public Use
  Company Number: US-HORIZON-2020HZN01519

PATIENT
  Sex: Male

DRUGS (1)
  1. DUEXIS [Suspect]
     Active Substance: FAMOTIDINE\IBUPROFEN
     Indication: BACK INJURY
     Dosage: 1 DOSAGE FORM, TID
     Dates: start: 2016

REACTIONS (3)
  - Off label use [Not Recovered/Not Resolved]
  - Vision blurred [Unknown]
  - Dyspepsia [Unknown]
